FAERS Safety Report 4747550-6 (Version None)
Quarter: 2005Q3

REPORT INFORMATION
  Report Type: 
  Country: None (occurrence: None)
  Receive Date: 20050818
  Receipt Date: 20040709
  Transmission Date: 20060218
  Serious: No
  Sender: FDA-Public Use
  Company Number: US-BRISTOL-MYERS SQUIBB COMPANY-12637641

PATIENT
  Age: 57 Year
  Sex: Male

DRUGS (5)
  1. TEQUIN [Suspect]
     Indication: KIDNEY INFECTION
     Route: 048
     Dates: start: 20040708, end: 20040709
  2. LISINOPRIL [Concomitant]
  3. LOTENSIN [Concomitant]
  4. VICODIN [Concomitant]
     Dosage: 5/500
     Route: 048
     Dates: start: 20040708
  5. TEMAZEPAM [Concomitant]
     Route: 048
     Dates: start: 20040414

REACTIONS (3)
  - ACCIDENTAL OVERDOSE [None]
  - INCORRECT DOSE ADMINISTERED [None]
  - NO ADVERSE EFFECT [None]
